FAERS Safety Report 11105767 (Version 1)
Quarter: 2015Q2

REPORT INFORMATION
  Report Type: Spontaneous
  Country: US (occurrence: None)
  Receive Date: 20150508
  Receipt Date: 20150508
  Transmission Date: 20150821
  Serious: Yes (Other)
  Sender: FDA-Public Use
  Company Number: None

PATIENT
  Age: 57 Year
  Sex: Female
  Weight: 95.26 kg

DRUGS (6)
  1. SUMATRIPTAN. [Concomitant]
     Active Substance: SUMATRIPTAN
  2. PROPRANOLOL [Suspect]
     Active Substance: PROPRANOLOL\PROPRANOLOL HYDROCHLORIDE
     Indication: TREMOR
     Dosage: 1TAB, THREE TIMES DAILY, TAKEN BY MOUTH
     Route: 048
     Dates: start: 20150504, end: 20150507
  3. PROPRANOLOL [Suspect]
     Active Substance: PROPRANOLOL\PROPRANOLOL HYDROCHLORIDE
     Indication: BLOOD PRESSURE INADEQUATELY CONTROLLED
     Dosage: 1TAB, THREE TIMES DAILY, TAKEN BY MOUTH
     Route: 048
     Dates: start: 20150504, end: 20150507
  4. OXYCODONE-ACETMINOPHEN [Concomitant]
  5. HYDROCHLOROTHAIZIDE [Concomitant]
  6. AMLODIPINEBESYLATE [Concomitant]

REACTIONS (3)
  - Product quality issue [None]
  - Product substitution issue [None]
  - Blood pressure increased [None]

NARRATIVE: CASE EVENT DATE: 20150507
